FAERS Safety Report 8354320-9 (Version None)
Quarter: 2012Q2

REPORT INFORMATION
  Report Type: 
  Country: None (occurrence: None)
  Receive Date: 20120511
  Receipt Date: 20110120
  Transmission Date: 20120825
  Serious: No
  Sender: FDA-Public Use
  Company Number: US-TEVA-2011000333

PATIENT
  Sex: Male
  Weight: 81.72 kg

DRUGS (18)
  1. SPIRONOLACTONE [Concomitant]
  2. KADIAN [Concomitant]
  3. MORPHINE SULPHATE IR [Concomitant]
  4. TRICOR [Concomitant]
  5. GABAPENTIN [Concomitant]
  6. NUVIGIL [Suspect]
     Indication: SLEEP APNOEA SYNDROME
     Route: 048
     Dates: start: 20110114, end: 20110114
  7. DEPO-TESTOSTERONE [Concomitant]
  8. ANUCORT HC [Concomitant]
  9. DEMADEX [Concomitant]
  10. CARVEDILOL [Concomitant]
  11. ELESTAT [Concomitant]
  12. HYDROCORTISONE [Concomitant]
     Dates: start: 20080101
  13. METOLAZONE [Concomitant]
  14. VITAMIN D [Concomitant]
  15. ZETIA [Concomitant]
  16. CHLORDIAZEPOXIDE HCL W/ CLIDINIUM BROMIDE [Concomitant]
  17. PENNSAID [Concomitant]
     Dates: start: 20101001
  18. POTASSIUM CHLORIDE [Concomitant]

REACTIONS (3)
  - NERVOUSNESS [None]
  - INSOMNIA [None]
  - BRUXISM [None]
